FAERS Safety Report 4351064-5 (Version None)
Quarter: 2004Q2

REPORT INFORMATION
  Report Type: 
  Country: None (occurrence: None)
  Receive Date: 20040429
  Receipt Date: 20030626
  Transmission Date: 20050107
  Serious: Yes (Hospitalization)
  Sender: FDA-Public Use
  Company Number: 2003UW08122

PATIENT
  Age: 38 Year
  Sex: Female

DRUGS (1)
  1. ZOMIG [Suspect]

REACTIONS (1)
  - MYOCARDIAL INFARCTION [None]
